FAERS Safety Report 5613136-4 (Version None)
Quarter: 2008Q1

REPORT INFORMATION
  Report Type: 
  Country: None (occurrence: None)
  Receive Date: 20080204
  Receipt Date: 20080201
  Transmission Date: 20080703
  Serious: Yes (Life-Threatening, Hospitalization, Other)
  Sender: FDA-Public Use
  Company Number: PHEH2007US15656

PATIENT
  Age: 70 Year
  Sex: Male
  Weight: 101.13 kg

DRUGS (10)
  1. LOPRESSOR [Suspect]
     Indication: ARTERIAL OCCLUSIVE DISEASE
     Dosage: 25 MG, BID
     Route: 048
     Dates: start: 20040101, end: 20041019
  2. GLUCOPHAGE [Concomitant]
     Indication: DIABETES MELLITUS
     Dosage: 500 MG, QD
     Route: 048
     Dates: start: 20030501
  3. PLAVIX [Concomitant]
     Indication: TRANSIENT ISCHAEMIC ATTACK
     Dosage: 75 MG, QD
     Route: 048
     Dates: start: 20030308
  4. FOSINOPRIL SODIUM [Concomitant]
     Indication: HYPERTENSION
     Dosage: 40
  5. ZOCOR [Concomitant]
     Indication: DYSLIPIDAEMIA
     Dosage: 20 MG, QD
     Route: 048
  6. LEXAPRO [Concomitant]
  7. HYDROCHLOROTHIAZIDE [Concomitant]
     Dosage: 25 MG, QD
     Route: 048
  8. SERTRALINE [Concomitant]
     Dosage: 50 MG, UNK
     Route: 048
  9. LISINOPRIL AND HYDROCHLOROTHIAZIDE [Concomitant]
     Indication: HYPERTENSION
     Dosage: 20/12.5 MG QD
     Route: 048
  10. ASPIRIN [Concomitant]
     Indication: CORONARY ARTERY DISEASE
     Dosage: 325 MG, QD
     Route: 048

REACTIONS (8)
  - ASTHENIA [None]
  - BLOOD PRESSURE DECREASED [None]
  - BRADYCARDIA [None]
  - HYPERHIDROSIS [None]
  - HYPOTENSION [None]
  - LOSS OF CONSCIOUSNESS [None]
  - NERVOUS SYSTEM DISORDER [None]
  - PRESYNCOPE [None]
